FAERS Safety Report 7523335-2 (Version None)
Quarter: 2011Q2

REPORT INFORMATION
  Report Type: 
  Country: None (occurrence: None)
  Receive Date: 20110603
  Receipt Date: 20110524
  Transmission Date: 20111010
  Serious: Yes (Death, Hospitalization)
  Sender: FDA-Public Use
  Company Number: A0924023A

PATIENT
  Age: 13 Year
  Sex: Male

DRUGS (5)
  1. SINGULAIR [Concomitant]
     Indication: PRODUCT USED FOR UNKNOWN INDICATION
  2. ALBUTEROL SULFATE AUTOHALER [Concomitant]
  3. CLARITIN [Concomitant]
  4. ADVAIR DISKUS 100/50 [Suspect]
     Indication: ASTHMA
     Dosage: 2PUFF TWICE PER DAY
     Route: 055
     Dates: end: 20030909
  5. AZMACORT [Concomitant]

REACTIONS (4)
  - BRONCHITIS CHRONIC [None]
  - ACUTE RESPIRATORY FAILURE [None]
  - ASTHMA [None]
  - PNEUMONIA [None]
